FAERS Safety Report 9407546 (Version 1)
Quarter: 2013Q3

REPORT INFORMATION
  Report Type: Spontaneous
  Country: US (occurrence: US)
  Receive Date: 20130718
  Receipt Date: 20130718
  Transmission Date: 20140515
  Serious: Yes (Hospitalization, Other)
  Sender: FDA-Public Use
  Company Number: US-BAYER-2013-084112

PATIENT
  Age: 31 Year
  Sex: Female
  Weight: 105.22 kg

DRUGS (3)
  1. YAZ [Suspect]
  2. PROPRANOLOL [Concomitant]
  3. PERCOCET [Concomitant]

REACTIONS (3)
  - Transient ischaemic attack [None]
  - Cholecystitis chronic [Recovered/Resolved]
  - Pancreatitis [Recovered/Resolved]
